FAERS Safety Report 18828982 (Version 1)
Quarter: 2021Q1

REPORT INFORMATION
  Report Type: Spontaneous
  Country: US (occurrence: US)
  Receive Date: 20210201
  Receipt Date: 20210201
  Transmission Date: 20210419
  Serious: Yes (Other)
  Sender: FDA-Public Use
  Company Number: US-ABBVIE-20K-163-3533292-00

PATIENT
  Age: 57 Year
  Sex: Female

DRUGS (2)
  1. METHOTREXATE. [Concomitant]
     Active Substance: METHOTREXATE
     Indication: UVEITIS
  2. HUMIRA [Suspect]
     Active Substance: ADALIMUMAB
     Indication: UVEITIS
     Route: 058
     Dates: start: 2019

REACTIONS (6)
  - Device issue [Unknown]
  - Injection site pain [Recovered/Resolved]
  - Eye operation [Recovered/Resolved]
  - Eye operation [Recovered/Resolved]
  - Eye operation [Recovered/Resolved]
  - Eye operation [Recovered/Resolved]

NARRATIVE: CASE EVENT DATE: 2019
